FAERS Safety Report 9621363 (Version 2)
Quarter: 2013Q4

REPORT INFORMATION
  Report Type: Spontaneous
  Country: US (occurrence: US)
  Receive Date: 20131015
  Receipt Date: 20131120
  Transmission Date: 20140711
  Serious: No
  Sender: FDA-Public Use
  Company Number: US-PFIZER INC-2013288927

PATIENT
  Age: 83 Year
  Sex: Female
  Weight: 56.69 kg

DRUGS (5)
  1. KETOROLAC [Suspect]
     Dosage: UNK
  2. TIMOLOL [Suspect]
     Indication: GLAUCOMA
     Dosage: UNK, BID
     Route: 047
     Dates: end: 20131001
  3. DORZOLAMIDE [Concomitant]
     Indication: GLAUCOMA
     Dosage: UNK, BID
     Dates: end: 20131002
  4. ALPHAGAN [Concomitant]
     Indication: GLAUCOMA
     Dosage: UNK, TID
     Dates: end: 20131002
  5. XALATAN [Concomitant]
     Indication: GLAUCOMA
     Dosage: UNK, PM
     Dates: end: 20131001

REACTIONS (4)
  - Eye irritation [Recovering/Resolving]
  - Eye pain [Recovering/Resolving]
  - Ocular hyperaemia [Recovering/Resolving]
  - Hypersensitivity [Recovering/Resolving]
